FAERS Safety Report 16055063 (Version 1)
Quarter: 2019Q1

REPORT INFORMATION
  Report Type: Spontaneous
  Country: US (occurrence: US)
  Receive Date: 20190310
  Receipt Date: 20190310
  Transmission Date: 20190418
  Serious: Yes (Other)
  Sender: FDA-Public Use
  Company Number: US-PRINSTON PHARMACEUTICAL INC.-2019PRN00234

PATIENT
  Age: 62 Year
  Sex: Female

DRUGS (1)
  1. VALSARTAN. [Suspect]
     Active Substance: VALSARTAN

REACTIONS (8)
  - Headache [Unknown]
  - Confusional state [Unknown]
  - Blood pressure increased [Unknown]
  - Dyspnoea [Unknown]
  - Head discomfort [Unknown]
  - Malaise [Unknown]
  - Dizziness [Unknown]
  - Product substitution issue [Unknown]
